FAERS Safety Report 18306755 (Version 1)
Quarter: 2020Q3

REPORT INFORMATION
  Report Type: Spontaneous
  Country: US (occurrence: US)
  Receive Date: 20200923
  Receipt Date: 20200923
  Transmission Date: 20201103
  Serious: No
  Sender: FDA-Public Use
  Company Number: None

PATIENT
  Age: 75 Year
  Sex: Male

DRUGS (1)
  1. ACALABRUTINIB. [Suspect]
     Active Substance: ACALABRUTINIB
     Route: 048
     Dates: start: 20191219, end: 20191225

REACTIONS (3)
  - Psychotic disorder [None]
  - Hallucination [None]
  - Suicidal ideation [None]

NARRATIVE: CASE EVENT DATE: 20191225
